FAERS Safety Report 19660512 (Version 1)
Quarter: 2021Q3

REPORT INFORMATION
  Report Type: Spontaneous
  Country: GR (occurrence: GR)
  Receive Date: 20210805
  Receipt Date: 20210805
  Transmission Date: 20211014
  Serious: Yes (Hospitalization, Disabling)
  Sender: FDA-Public Use
  Company Number: GR-MYLANLABS-2021M1048528

PATIENT
  Age: 69 Year
  Sex: Female

DRUGS (11)
  1. CYTARABINE. [Suspect]
     Active Substance: CYTARABINE
     Indication: PROGRESSIVE MULTIFOCAL LEUKOENCEPHALOPATHY
     Dosage: 4 DOSAGE FORM
     Route: 037
  2. MIRTAZAPINE. [Suspect]
     Active Substance: MIRTAZAPINE
     Indication: PROGRESSIVE MULTIFOCAL LEUKOENCEPHALOPATHY
     Dosage: UNK
     Route: 048
  3. CIDOFOVIR. [Suspect]
     Active Substance: CIDOFOVIR
     Indication: PROGRESSIVE MULTIFOCAL LEUKOENCEPHALOPATHY
     Dosage: UNK, Q3W
     Route: 048
  4. RITUXIMAB. [Concomitant]
     Active Substance: RITUXIMAB
     Dosage: MAINTENANCE THERAPY
     Route: 065
  5. CHLORAMBUCIL [Concomitant]
     Active Substance: CHLORAMBUCIL
     Indication: FOLLICULAR LYMPHOMA
     Dosage: 8 CYCLES
     Route: 065
  6. CIDOFOVIR. [Suspect]
     Active Substance: CIDOFOVIR
     Dosage: UNK
     Route: 065
  7. RITUXIMAB. [Concomitant]
     Active Substance: RITUXIMAB
     Indication: FOLLICULAR LYMPHOMA
     Dosage: 8 CYCLES
     Route: 065
  8. GAMMA GLOBULIN [Suspect]
     Active Substance: IMMUNE GLOBULIN NOS
     Indication: PROGRESSIVE MULTIFOCAL LEUKOENCEPHALOPATHY
     Dosage: UNK
     Route: 042
  9. BENDAMUSTINE [Concomitant]
     Active Substance: BENDAMUSTINE
     Indication: FOLLICULAR LYMPHOMA
     Dosage: 6 CYCLES
     Route: 065
  10. OBINUTUZUMAB. [Concomitant]
     Active Substance: OBINUTUZUMAB
     Indication: FOLLICULAR LYMPHOMA
     Dosage: RECEIVED 6 CYCLES
     Route: 065
  11. OBINUTUZUMAB. [Concomitant]
     Active Substance: OBINUTUZUMAB
     Dosage: MAINTENANCE THERAPY
     Route: 065

REACTIONS (5)
  - Dysarthria [Unknown]
  - Drug ineffective for unapproved indication [Unknown]
  - Cognitive disorder [Unknown]
  - Hemiparesis [Unknown]
  - Off label use [Unknown]

NARRATIVE: CASE EVENT DATE: 2017
